FAERS Safety Report 17770142 (Version 1)
Quarter: 2020Q2

REPORT INFORMATION
  Report Type: Spontaneous
  Country: US (occurrence: US)
  Receive Date: 20200512
  Receipt Date: 20200512
  Transmission Date: 20200714
  Serious: No
  Sender: FDA-Public Use
  Company Number: None

PATIENT
  Age: 60 Year
  Sex: Male
  Weight: 75.6 kg

DRUGS (8)
  1. TETRACYCLINE [Suspect]
     Active Substance: TETRACYCLINE
     Indication: INFECTION
     Dosage: ?          QUANTITY:2 CAPSULE(S);?
     Route: 048
  2. PROVENTIL [Concomitant]
     Active Substance: ALBUTEROL
  3. PATADAY [Concomitant]
     Active Substance: OLOPATADINE HYDROCHLORIDE
  4. TETRACYCLINE [Suspect]
     Active Substance: TETRACYCLINE
     Indication: OESOPHAGEAL CARCINOMA
     Dosage: ?          QUANTITY:2 CAPSULE(S);?
     Route: 048
  5. TIMOLOL. [Concomitant]
     Active Substance: TIMOLOL
  6. SYSTANE ULTA [Concomitant]
  7. ALBUTEROL NEBULIZER [Concomitant]
     Active Substance: ALBUTEROL
  8. OXYGEN. [Concomitant]
     Active Substance: OXYGEN

REACTIONS (1)
  - Renal failure [None]

NARRATIVE: CASE EVENT DATE: 20191114
